FAERS Safety Report 19173251 (Version 2)
Quarter: 2021Q2

REPORT INFORMATION
  Report Type: Spontaneous
  Country: JP (occurrence: JP)
  Receive Date: 20210423
  Receipt Date: 20210426
  Transmission Date: 20210717
  Serious: Yes (Hospitalization)
  Sender: FDA-Public Use
  Company Number: JP-ALLERGAN-2115900US

PATIENT
  Sex: Female

DRUGS (3)
  1. NO SUSPECT ALLERGAN PRODUCT [Suspect]
     Active Substance: UNSPECIFIED INGREDIENT
     Indication: COLITIS ULCERATIVE
     Route: 065
  2. PENTASA [Suspect]
     Active Substance: MESALAMINE
     Indication: COLITIS ULCERATIVE
     Dosage: 2000 MG, BID, FROM EARLY GESTATION TO DELIVERY
     Route: 065
  3. BETAMETHASONE. [Suspect]
     Active Substance: BETAMETHASONE
     Indication: COLITIS ULCERATIVE
     Dosage: OCCASIONALLY
     Route: 065

REACTIONS (2)
  - Premature labour [Unknown]
  - Pregnancy [Unknown]
